FAERS Safety Report 13017601 (Version 1)
Quarter: 2016Q4

REPORT INFORMATION
  Report Type: Spontaneous
  Country: US (occurrence: US)
  Receive Date: 20161212
  Receipt Date: 20161212
  Transmission Date: 20170207
  Serious: No
  Sender: FDA-Public Use
  Company Number: None

PATIENT
  Age: 63 Year
  Sex: Female
  Weight: 54.43 kg

DRUGS (2)
  1. MULTIVITAMINS [Concomitant]
     Active Substance: VITAMINS
  2. TACROLIMUS. [Suspect]
     Active Substance: TACROLIMUS
     Indication: ECZEMA
     Dosage: ?          QUANTITY:WY^F L5 ??P - 212L642.?AN;?
     Route: 061
     Dates: start: 20160915, end: 20161018

REACTIONS (5)
  - Product substitution issue [None]
  - Application site swelling [None]
  - Application site irritation [None]
  - Application site erythema [None]
  - Drug ineffective [None]

NARRATIVE: CASE EVENT DATE: 20160917
